FAERS Safety Report 25336277 (Version 2)
Quarter: 2025Q2

REPORT INFORMATION
  Report Type: Spontaneous
  Country: JP (occurrence: JP)
  Receive Date: 20250520
  Receipt Date: 20250602
  Transmission Date: 20250717
  Serious: Yes (Hospitalization, Other)
  Sender: NANJING KING-FRIEND BIOCHEMICAL PHARMACEUTICAL
  Company Number: JP-NKFPHARMA-2025MPLIT00197

PATIENT
  Age: 67 Year
  Sex: Male
  Weight: 75.2 kg

DRUGS (2)
  1. HEPARIN [Suspect]
     Active Substance: HEPARIN SODIUM
     Indication: Cerebral infarction
     Route: 042
  2. HEPARIN [Suspect]
     Active Substance: HEPARIN SODIUM
     Indication: Anticoagulant therapy

REACTIONS (3)
  - Respiratory arrest [Unknown]
  - Generalised tonic-clonic seizure [Unknown]
  - Heparin-induced thrombocytopenia [Recovered/Resolved]
